FAERS Safety Report 7417663-9 (Version None)
Quarter: 2011Q2

REPORT INFORMATION
  Report Type: 
  Country: None (occurrence: None)
  Receive Date: 20110415
  Receipt Date: 20110406
  Transmission Date: 20111010
  Serious: Yes (Hospitalization, Other)
  Sender: FDA-Public Use
  Company Number: PHHO2010JP09115

PATIENT
  Sex: Male

DRUGS (11)
  1. BLOPRESS [Concomitant]
     Indication: CARDIAC FAILURE
  2. ENALAPRIL MALEATE [Suspect]
     Indication: CARDIAC FAILURE
     Dosage: CODE NOT BROKEN
     Route: 048
     Dates: start: 20100208, end: 20100614
  3. ARTIST [Concomitant]
     Indication: CARDIAC FAILURE
  4. LASIX [Concomitant]
     Indication: CARDIAC FAILURE
  5. EPADEL [Concomitant]
  6. BLINDED ALISKIREN [Suspect]
     Indication: CARDIAC FAILURE
     Dosage: CODE NOT BROKEN
     Route: 048
     Dates: start: 20100208, end: 20100614
  7. ALISKIREN [Suspect]
     Indication: CARDIAC FAILURE
     Dosage: UNK
     Route: 048
     Dates: start: 20100118
  8. ALOSITOL [Concomitant]
  9. WARFARIN [Concomitant]
  10. BLINDED NO TREATMENT RECEIVED [Suspect]
     Indication: CARDIAC FAILURE
     Dosage: CODE NOT BROKEN
     Route: 048
     Dates: start: 20100208, end: 20100614
  11. ENALAPRIL MALEATE [Suspect]
     Indication: CARDIAC FAILURE
     Dosage: UNK
     Route: 048
     Dates: start: 20091201

REACTIONS (5)
  - DYSPNOEA [None]
  - HEART RATE DECREASED [None]
  - CARDIAC FAILURE [None]
  - OEDEMA [None]
  - MYOCARDIAL ISCHAEMIA [None]
